FAERS Safety Report 23079350 (Version 1)
Quarter: 2023Q4

REPORT INFORMATION
  Report Type: Spontaneous
  Country: US (occurrence: US)
  Receive Date: 20231018
  Receipt Date: 20231018
  Transmission Date: 20240109
  Serious: Yes (Hospitalization)
  Sender: FDA-Public Use
  Company Number: US-INCYTE CORPORATION-2023IN010667

PATIENT

DRUGS (1)
  1. JAKAFI [Suspect]
     Active Substance: RUXOLITINIB
     Indication: Hodgkin^s disease
     Dosage: 10 MILLIGRAM, BID
     Route: 048

REACTIONS (2)
  - Bone marrow disorder [Unknown]
  - Off label use [Unknown]
